FAERS Safety Report 8916829 (Version 1)
Quarter: 2012Q4

REPORT INFORMATION
  Report Type: Report from Study
  Country: DE (occurrence: DE)
  Receive Date: 20121120
  Receipt Date: 20121120
  Transmission Date: 20130627
  Serious: Yes (Hospitalization)
  Sender: FDA-Public Use
  Company Number: DE-ROCHE-1155967

PATIENT
  Age: 83 Year
  Sex: Female
  Weight: 63 kg

DRUGS (1)
  1. RITUXIMAB [Suspect]
     Indication: RHEUMATOID ARTHRITIS
     Dosage: Last administration of rituximab proir to event on 19/Sep/2011.
     Route: 042
     Dates: start: 20110328

REACTIONS (4)
  - Medical device complication [Recovered/Resolved with Sequelae]
  - Myocardial infarction [Recovered/Resolved with Sequelae]
  - Acute coronary syndrome [Recovered/Resolved with Sequelae]
  - Coronary artery disease [Recovered/Resolved with Sequelae]
